FAERS Safety Report 19078036 (Version 1)
Quarter: 2021Q1

REPORT INFORMATION
  Report Type: Spontaneous
  Country: US (occurrence: US)
  Receive Date: 20210331
  Receipt Date: 20210331
  Transmission Date: 20210420
  Serious: No
  Sender: FDA-Public Use
  Company Number: None

PATIENT
  Age: 76 Year
  Sex: Male
  Weight: 79.38 kg

DRUGS (1)
  1. IODIXANOL. [Suspect]
     Active Substance: IODIXANOL
     Indication: CARDIAC OPERATION
     Route: 042
     Dates: start: 20210303, end: 20210303

REACTIONS (2)
  - Rash [None]
  - Erythema multiforme [None]

NARRATIVE: CASE EVENT DATE: 20210309
